FAERS Safety Report 5735304-3 (Version None)
Quarter: 2008Q2

REPORT INFORMATION
  Report Type: 
  Country: None (occurrence: None)
  Receive Date: 20080512
  Receipt Date: 20080506
  Transmission Date: 20081010
  Serious: Yes (Congenital Anomaly)
  Sender: FDA-Public Use
  Company Number: GB-BRISTOL-MYERS SQUIBB COMPANY-13901806

PATIENT
  Sex: Male
  Weight: 3 kg

DRUGS (1)
  1. ABILIFY [Suspect]
     Route: 064

REACTIONS (3)
  - LIVE BIRTH [None]
  - PREGNANCY [None]
  - SKULL MALFORMATION [None]
